FAERS Safety Report 16918965 (Version 4)
Quarter: 2020Q1

REPORT INFORMATION
  Report Type: Spontaneous
  Country: US (occurrence: US)
  Receive Date: 20191015
  Receipt Date: 20200114
  Transmission Date: 20200409
  Serious: No
  Sender: FDA-Public Use
  Company Number: US-PFIZER INC-2019422772

PATIENT
  Age: 85 Year
  Sex: Female
  Weight: 58.96 kg

DRUGS (3)
  1. PREMARIN [Suspect]
     Active Substance: ESTROGENS, CONJUGATED
     Indication: VULVOVAGINAL DISCOMFORT
     Dosage: 1.5 MG, 2X/WEEK
     Route: 067
  2. PREMARIN [Suspect]
     Active Substance: ESTROGENS, CONJUGATED
     Indication: ATROPHIC VULVOVAGINITIS
     Dosage: 1 G, UNK (1(ONE) GRAM VAGINALLY DAILY FOR 2 WEEKS THEN REDUCE TO 3 TIMES WEEKLY)
     Route: 067
  3. PREMARIN [Suspect]
     Active Substance: ESTROGENS, CONJUGATED
     Dosage: 1 G, 2X/WEEK (1 (ONE) GRAM TWICE WEEKLY)
     Route: 067

REACTIONS (4)
  - Off label use [Unknown]
  - Insomnia [Unknown]
  - Product use issue [Unknown]
  - Pain [Unknown]
